FAERS Safety Report 4554105-5 (Version None)
Quarter: 2005Q1

REPORT INFORMATION
  Report Type: 
  Country: None (occurrence: None)
  Receive Date: 20050118
  Receipt Date: 20041011
  Transmission Date: 20050727
  Serious: Yes (Hospitalization)
  Sender: FDA-Public Use
  Company Number: DE-MERCK-0410DEU00375

PATIENT
  Age: 43 Year
  Sex: Female
  Weight: 67 kg

DRUGS (13)
  1. VIOXX [Suspect]
     Indication: INTERVERTEBRAL DISC PROTRUSION
     Route: 048
     Dates: start: 20030428, end: 20041001
  2. VIOXX [Suspect]
     Indication: BACK PAIN
     Route: 048
     Dates: start: 20030428, end: 20041001
  3. OXYCODONE HYDROCHLORIDE [Concomitant]
     Indication: SCIATICA
     Route: 048
     Dates: start: 20030526
  4. AMITRIPTYLINE HYDROCHLORIDE [Concomitant]
     Indication: SCIATICA
     Route: 048
     Dates: start: 20030428, end: 20040628
  5. HALOPERIDOL [Concomitant]
     Route: 048
     Dates: start: 20030526
  6. THEOPHYLLINE [Concomitant]
     Route: 048
  7. FLUTICASONE PROPIONATE AND SALMETEROL XINAFOATE [Concomitant]
     Route: 055
  8. MORPHINE [Concomitant]
     Route: 065
     Dates: start: 20030620
  9. OMEPRAZOLE [Concomitant]
     Route: 048
     Dates: start: 20030721
  10. CETIRIZINE HYDROCHLORIDE [Concomitant]
     Route: 048
  11. FENTANYL [Concomitant]
     Route: 048
     Dates: start: 20040920
  12. DIPYRONE [Concomitant]
     Route: 048
  13. DOXEPIN HYDROCHLORIDE [Concomitant]
     Route: 048
     Dates: start: 20041021

REACTIONS (12)
  - ANGINA PECTORIS [None]
  - BLOOD PRESSURE DIASTOLIC INCREASED [None]
  - CERVICOBRACHIAL SYNDROME [None]
  - CHEST DISCOMFORT [None]
  - HYPERTENSION [None]
  - HYPOAESTHESIA [None]
  - MYOCARDIAL INFARCTION [None]
  - OVERDOSE [None]
  - PSEUDOANGINA [None]
  - PSYCHOSOMATIC DISEASE [None]
  - TACHYARRHYTHMIA [None]
  - TACHYCARDIA [None]
